FAERS Safety Report 8307159-4 (Version None)
Quarter: 2012Q2

REPORT INFORMATION
  Report Type: 
  Country: None (occurrence: None)
  Receive Date: 20120424
  Receipt Date: 20120420
  Transmission Date: 20120825
  Serious: Yes (Death, Other)
  Sender: FDA-Public Use
  Company Number: PHHY2011PE105000

PATIENT
  Sex: Female

DRUGS (3)
  1. NEURONTIN [Concomitant]
  2. VITAMIN B NOS [Concomitant]
  3. STALEVO 100 [Suspect]
     Indication: PARKINSON'S DISEASE
     Dosage: 200/50/12.5 MG, THREE TIMES DAILY
     Dates: start: 20110530, end: 20111201

REACTIONS (5)
  - LUNG NEOPLASM MALIGNANT [None]
  - NAUSEA [None]
  - DIZZINESS [None]
  - DEATH [None]
  - HAEMOPTYSIS [None]
